FAERS Safety Report 7277614 (Version 22)
Quarter: 2013Q4

REPORT INFORMATION
  Report Type: Spontaneous
  Country: US (occurrence: US)
  Receive Date: 20100212
  Receipt Date: 20131015
  Transmission Date: 20140711
  Serious: Yes (Death, Hospitalization, Other)
  Sender: FDA-Public Use
  Company Number: PHEH2010US01808

PATIENT
  Age: 68 Year
  Sex: Female

DRUGS (13)
  1. ZOMETA [Suspect]
     Route: 042
     Dates: start: 20040506, end: 20061031
  2. TOPROL XL [Concomitant]
     Dosage: 25 MG, QD
  3. DIOVAN [Concomitant]
     Dosage: 160 MG, QD
  4. ZETIA [Concomitant]
     Dosage: 10 MG, QD
  5. ISOSORBIDE [Concomitant]
     Dosage: 20 MG, BID
  6. ASPIRIN [Concomitant]
     Dosage: 325 MG, QD
  7. OMEPRAZOLE [Concomitant]
     Dosage: 20 MG, QD
  8. CALCIUM [Concomitant]
  9. ARIMIDEX [Concomitant]
     Dosage: 1 MG, QD
  10. PRAVACHOL [Concomitant]
     Dosage: 20 MG, QD
  11. AMIODARONE [Concomitant]
  12. LIPITOR [Concomitant]
  13. COREG [Concomitant]

REACTIONS (134)
  - Mitral valve incompetence [Unknown]
  - Pneumonia [Unknown]
  - Dyspnoea [Unknown]
  - Mental impairment [Unknown]
  - Lung infiltration [Unknown]
  - Pleural effusion [Unknown]
  - Pulmonary hypertension [Unknown]
  - Urosepsis [Unknown]
  - Urinary tract infection [Unknown]
  - Atelectasis [Unknown]
  - Septic shock [Unknown]
  - Cancer pain [Unknown]
  - Transient ischaemic attack [Unknown]
  - Renal failure chronic [Unknown]
  - Neuropathy peripheral [Unknown]
  - Osteoarthritis [Unknown]
  - Bone lesion [Unknown]
  - Pathological fracture [Unknown]
  - Hypertension [Unknown]
  - Osteonecrosis of jaw [Unknown]
  - Injury [Unknown]
  - Disability [Unknown]
  - Pain [Unknown]
  - Anxiety [Unknown]
  - Pain in jaw [Unknown]
  - Gingivitis [Unknown]
  - Quality of life decreased [Unknown]
  - Hypoaesthesia [Unknown]
  - Cheilitis [Unknown]
  - Tooth loss [Unknown]
  - Gastrooesophageal reflux disease [Unknown]
  - Bone pain [Unknown]
  - Mass [Unknown]
  - Decubitus ulcer [Unknown]
  - Memory impairment [Unknown]
  - Anaemia [Unknown]
  - Muscle spasms [Not Recovered/Not Resolved]
  - Muscle twitching [Unknown]
  - Leukocytosis [Unknown]
  - Hypokalaemia [Unknown]
  - Hyperlipidaemia [Unknown]
  - Lymphadenopathy mediastinal [Unknown]
  - Diverticulum intestinal [Unknown]
  - Cholelithiasis [Unknown]
  - Electrocardiogram T wave inversion [Unknown]
  - Osteopenia [Unknown]
  - Intervertebral disc protrusion [Not Recovered/Not Resolved]
  - Intervertebral disc space narrowing [Unknown]
  - Scoliosis [Unknown]
  - Back pain [Not Recovered/Not Resolved]
  - Patellofemoral pain syndrome [Unknown]
  - Abscess jaw [Unknown]
  - Oedema peripheral [Unknown]
  - Supraventricular tachycardia [Unknown]
  - Left ventricular hypertrophy [Unknown]
  - Respiratory failure [Unknown]
  - Paraneoplastic syndrome [Unknown]
  - Azotaemia [Unknown]
  - Sinus tachycardia [Unknown]
  - Hepatitis C [Unknown]
  - Goitre [Unknown]
  - Pleural fibrosis [Unknown]
  - Convulsion [Unknown]
  - Cerebral ischaemia [Unknown]
  - Fatigue [Unknown]
  - Dental caries [Unknown]
  - Metastases to spine [Not Recovered/Not Resolved]
  - Burning sensation [Unknown]
  - Fistula [Unknown]
  - Spinal deformity [Unknown]
  - Pain in extremity [Unknown]
  - Dehydration [Unknown]
  - Hypoglycaemia [Unknown]
  - Sinusitis [Unknown]
  - Myocardial ischaemia [Unknown]
  - Depression [Unknown]
  - Hypothyroidism [Unknown]
  - Osteoporosis [Unknown]
  - Bronchitis chronic [Not Recovered/Not Resolved]
  - Wound [Unknown]
  - Hyponatraemia [Unknown]
  - Microcytic anaemia [Unknown]
  - Hypoalbuminaemia [Unknown]
  - Purulent discharge [Unknown]
  - Gait disturbance [Unknown]
  - Skin ulcer [Unknown]
  - Musculoskeletal disorder [Unknown]
  - Dysphagia [Unknown]
  - Bullous lung disease [Unknown]
  - Infected skin ulcer [Unknown]
  - Poor dental condition [Unknown]
  - Erythema induratum [Unknown]
  - Wound complication [Unknown]
  - Impaired healing [Not Recovered/Not Resolved]
  - Renal disorder [Unknown]
  - Ureteral disorder [Unknown]
  - Mastication disorder [Unknown]
  - Chronic obstructive pulmonary disease [Unknown]
  - Urinary incontinence [Unknown]
  - Cholecystitis [Unknown]
  - Cerebral atrophy [Unknown]
  - Rib fracture [Unknown]
  - Osteosclerosis [Unknown]
  - Intervertebral disc degeneration [Unknown]
  - Metastases to bone [Unknown]
  - Malignant neoplasm progression [Unknown]
  - Spinal compression fracture [Unknown]
  - Lung hyperinflation [Unknown]
  - Diaphragmatic disorder [Unknown]
  - Lung disorder [Unknown]
  - Tendon injury [Unknown]
  - Neuroma [Unknown]
  - Deep vein thrombosis [Unknown]
  - Ejection fraction decreased [Unknown]
  - Lymphadenopathy [Unknown]
  - Renal cyst [Unknown]
  - Staphylococcal infection [Unknown]
  - Spinal osteoarthritis [Unknown]
  - Faecal incontinence [Unknown]
  - Arthralgia [Unknown]
  - Cognitive disorder [Unknown]
  - Agitation [Unknown]
  - Decreased appetite [Unknown]
  - Sinus bradycardia [Unknown]
  - Atrioventricular block first degree [Unknown]
  - Death [Fatal]
  - Acute coronary syndrome [Unknown]
  - Cardiac failure congestive [Unknown]
  - Cardiomegaly [Unknown]
  - Ischaemic cardiomyopathy [Unknown]
  - Troponin I increased [Unknown]
  - Ventricular dysfunction [Unknown]
  - Aortic valve incompetence [Unknown]
  - Tricuspid valve incompetence [Unknown]
